FAERS Safety Report 8914262 (Version 1)
Quarter: 2012Q4

REPORT INFORMATION
  Report Type: Report from Study
  Country: CA (occurrence: CA)
  Receive Date: 20121119
  Receipt Date: 20121119
  Transmission Date: 20130627
  Serious: Yes (Other)
  Sender: FDA-Public Use
  Company Number: CA-JNJFOC-20121105661

PATIENT
  Age: 55 Year
  Sex: Male

DRUGS (4)
  1. REMICADE [Suspect]
     Indication: CROHN^S DISEASE
     Route: 042
     Dates: start: 20121026
  2. IMURAN [Concomitant]
     Route: 048
  3. ASA [Concomitant]
     Route: 065
  4. ROSUVASTATIN [Concomitant]
     Route: 065

REACTIONS (4)
  - Dizziness [Recovered/Resolved]
  - Confusional state [Recovered/Resolved]
  - Vision blurred [Recovered/Resolved]
  - Flushing [Recovered/Resolved]
